FAERS Safety Report 9260630 (Version 3)
Quarter: 2014Q1

REPORT INFORMATION
  Report Type: Spontaneous
  Country: US (occurrence: US)
  Receive Date: 20130429
  Receipt Date: 20140107
  Transmission Date: 20141002
  Serious: Yes (Hospitalization, Other)
  Sender: FDA-Public Use
  Company Number: US-009507513-1304USA013293

PATIENT
  Sex: Female
  Weight: 61.22 kg

DRUGS (2)
  1. NUVARING [Suspect]
     Indication: CONTRACEPTION
     Dosage: UNK
     Route: 067
     Dates: start: 200608, end: 200702
  2. NUVARING [Suspect]
     Dosage: UNK
     Route: 067
     Dates: start: 201203, end: 201204

REACTIONS (4)
  - Pulmonary embolism [Recovered/Resolved]
  - Skin lesion [Unknown]
  - Headache [Unknown]
  - Maternal exposure before pregnancy [Unknown]
